FAERS Safety Report 8493049 (Version 7)
Quarter: 2018Q3

REPORT INFORMATION
  Report Type: Spontaneous
  Country: FR (occurrence: FR)
  Receive Date: 20120404
  Receipt Date: 20180911
  Transmission Date: 20181010
  Serious: Yes (Hospitalization, Other)
  Sender: FDA-Public Use
  Company Number: PHHY2012FR027963

PATIENT
  Age: 58 Year
  Sex: Female

DRUGS (42)
  1. FARMORUBICINE [Suspect]
     Active Substance: EPIRUBICIN HYDROCHLORIDE
     Dosage: 170 MG, QD (CYCLIC)
     Route: 042
     Dates: start: 20030227, end: 20030227
  2. STILNOX [Suspect]
     Active Substance: ZOLPIDEM TARTRATE
     Indication: PRODUCT USED FOR UNKNOWN INDICATION
     Dosage: 1 ?G/L, QD
     Route: 065
  3. LEXOMIL [Concomitant]
     Active Substance: BROMAZEPAM
     Indication: PRODUCT USED FOR UNKNOWN INDICATION
     Dosage: 5 ?G/L, QD (2 DF MORNING, 1 DF MIDDAY, 2 DF EVENING)
  4. KALEORID [Concomitant]
     Active Substance: POTASSIUM CHLORIDE
     Dosage: UNK UKN, UNK
  5. KARDEGIC [Concomitant]
     Active Substance: ASPIRIN DL-LYSINE
     Dosage: UNK UKN, UNK
  6. PRIMPERAN [Concomitant]
     Active Substance: METOCLOPRAMIDE HYDROCHLORIDE
     Indication: PRODUCT USED FOR UNKNOWN INDICATION
     Dosage: 2 ?G/L, UNK (2 VIALS)
     Route: 065
  7. FEMARA [Suspect]
     Active Substance: LETROZOLE
     Dosage: UNK
     Route: 048
     Dates: start: 2009
  8. CARDENSIEL [Concomitant]
     Active Substance: BISOPROLOL FUMARATE
     Dosage: UNK UKN, UNK
  9. DIFFU K [Concomitant]
     Active Substance: POTASSIUM CHLORIDE
     Dosage: UNK UKN, UNK
  10. ENDOXAN [Concomitant]
     Active Substance: CYCLOPHOSPHAMIDE
     Indication: PRODUCT USED FOR UNKNOWN INDICATION
     Dosage: 860 MG, QD (CYCLIC)
     Route: 065
     Dates: start: 20021203, end: 20021203
  11. LORMETAZEPAM [Concomitant]
     Active Substance: LORMETAZEPAM
     Indication: PRODUCT USED FOR UNKNOWN INDICATION
     Dosage: UNK
     Route: 065
  12. FEMARA [Suspect]
     Active Substance: LETROZOLE
     Indication: BREAST CANCER
     Dosage: 1 ?G/L, QD
     Route: 048
     Dates: start: 2008
  13. FARMORUBICINE [Suspect]
     Active Substance: EPIRUBICIN HYDROCHLORIDE
     Dosage: 170 MG, QD (CYCLIC)
     Route: 042
     Dates: start: 20030206, end: 20030206
  14. EFFEXOR [Concomitant]
     Active Substance: VENLAFAXINE HYDROCHLORIDE
     Indication: PRODUCT USED FOR UNKNOWN INDICATION
     Dosage: 1 ?G/L, QD
  15. PARACETAMOL [Concomitant]
     Active Substance: ACETAMINOPHEN
     Dosage: 1 G EVERY 6 HOURS UP TO 4 G DAILY
  16. FLUOROURACIL. [Concomitant]
     Active Substance: FLUOROURACIL
     Indication: PRODUCT USED FOR UNKNOWN INDICATION
     Dosage: 860 MG, QD (CYCLIC)
     Route: 065
     Dates: start: 20021203, end: 20021203
  17. FLUOROURACIL. [Concomitant]
     Active Substance: FLUOROURACIL
     Dosage: 860 MG, QD (CYCLIC)
     Route: 065
     Dates: start: 20021226, end: 20021226
  18. FLUOROURACIL. [Concomitant]
     Active Substance: FLUOROURACIL
     Dosage: 860 MG, QD (CYCLIC)
     Route: 065
     Dates: start: 20030227, end: 20030227
  19. ENDOXAN [Concomitant]
     Active Substance: CYCLOPHOSPHAMIDE
     Dosage: 860 MG, QD (CYCLIC)
     Route: 065
     Dates: start: 20030320, end: 20030320
  20. TRIATEC [Concomitant]
     Dosage: ONCE
  21. FLUOROURACIL. [Concomitant]
     Active Substance: FLUOROURACIL
     Dosage: 860 MG, QD (CYCLIC)
     Route: 065
     Dates: start: 20030203, end: 20030206
  22. ENDOXAN [Concomitant]
     Active Substance: CYCLOPHOSPHAMIDE
     Dosage: 860 MG, QD (CYCLIC)
     Route: 065
     Dates: start: 20030206, end: 20030206
  23. ENDOXAN [Concomitant]
     Active Substance: CYCLOPHOSPHAMIDE
     Dosage: 860 MG, QD (CYCLIC)
     Route: 065
     Dates: start: 20030227, end: 20030227
  24. LEVOTHYROX [Concomitant]
     Active Substance: LEVOTHYROXINE
     Indication: HYPOTHYROIDISM
     Dosage: 1 ?G/L, QD
     Route: 065
  25. THERALENE [Concomitant]
     Active Substance: TRIMEPRAZINE
     Dosage: UNK UKN, UNK
  26. FLUOROURACIL. [Concomitant]
     Active Substance: FLUOROURACIL
     Dosage: 860 MG, QD (CYCLIC)
     Route: 065
     Dates: start: 20030116, end: 20030116
  27. TRANXENE [Concomitant]
     Active Substance: CLORAZEPATE DIPOTASSIUM
     Indication: PRODUCT USED FOR UNKNOWN INDICATION
     Dosage: 20 MG, UNK
     Route: 065
  28. ZOPHREN [Concomitant]
     Active Substance: ONDANSETRON
     Indication: PRODUCT USED FOR UNKNOWN INDICATION
     Dosage: 1 ?G/L, UNK (1 VIAL)
     Route: 065
  29. FARMORUBICINE [Suspect]
     Active Substance: EPIRUBICIN HYDROCHLORIDE
     Dosage: 170 MG, QD (CYCLIC)
     Route: 042
     Dates: start: 20030320, end: 20030320
  30. NOCTAMID [Concomitant]
     Active Substance: LORMETAZEPAM
     Dosage: UNK UKN, UNK
  31. ARIXTRA [Concomitant]
     Active Substance: FONDAPARINUX SODIUM
     Dosage: UNK UKN, UNK
  32. PREVISCAN [Concomitant]
     Dosage: UNK UKN, UNK
  33. SOLU?MEDROL [Concomitant]
     Active Substance: METHYLPREDNISOLONE SODIUM SUCCINATE
     Indication: PRODUCT USED FOR UNKNOWN INDICATION
     Dosage: 40 MG, UNK
     Route: 065
  34. FARMORUBICINE [Suspect]
     Active Substance: EPIRUBICIN HYDROCHLORIDE
     Indication: BREAST CANCER
     Dosage: 170 MG, QD (CYCLIC)
     Route: 042
     Dates: start: 20021203, end: 20021203
  35. FARMORUBICINE [Suspect]
     Active Substance: EPIRUBICIN HYDROCHLORIDE
     Dosage: 170 MG, QD (CYCLIC)
     Route: 042
     Dates: start: 20030112, end: 20030116
  36. MAGNESIUM [Concomitant]
     Active Substance: MAGNESIUM
     Indication: MUSCLE SPASMS
     Dosage: UNK UKN, UNK
  37. BROMAZEPAM [Concomitant]
     Active Substance: BROMAZEPAM
     Dosage: UNK UKN, UNK
  38. FARMORUBICINE [Suspect]
     Active Substance: EPIRUBICIN HYDROCHLORIDE
     Dosage: 170 MG, QD (CYCLIC)
     Route: 042
     Dates: start: 20021226, end: 20021226
  39. FUROSEMIDE. [Concomitant]
     Active Substance: FUROSEMIDE
     Dosage: UNK UKN, UNK
  40. FLUOROURACIL. [Concomitant]
     Active Substance: FLUOROURACIL
     Dosage: 860 MG, QD (CYCLIC)
     Route: 065
     Dates: start: 20030320, end: 20030320
  41. ENDOXAN [Concomitant]
     Active Substance: CYCLOPHOSPHAMIDE
     Dosage: 860 MG, QD (CYCLIC)
     Route: 065
     Dates: start: 20021226, end: 20021226
  42. ENDOXAN [Concomitant]
     Active Substance: CYCLOPHOSPHAMIDE
     Dosage: 860 MG, QD (CYCLIC)
     Route: 065
     Dates: start: 20030116, end: 20030116

REACTIONS (21)
  - Cholecystitis [Unknown]
  - Hyperthyroidism [Unknown]
  - Pain [Unknown]
  - Fatigue [Unknown]
  - Pulmonary hypertension [Unknown]
  - Blood thyroid stimulating hormone decreased [Unknown]
  - Gait disturbance [Unknown]
  - Hypokinesia [Unknown]
  - Ejection fraction decreased [Unknown]
  - Blood pressure decreased [Unknown]
  - Crepitations [Recovered/Resolved]
  - Sinus tachycardia [Unknown]
  - Dyspnoea [Unknown]
  - Cardiac output decreased [Unknown]
  - Asthenia [Unknown]
  - Drug intolerance [Unknown]
  - Weight decreased [Unknown]
  - Congestive cardiomyopathy [Not Recovered/Not Resolved]
  - Cardiac failure [Unknown]
  - Acute pulmonary oedema [Unknown]
  - Oedema peripheral [Unknown]

NARRATIVE: CASE EVENT DATE: 2011
